FAERS Safety Report 9342123 (Version 1)
Quarter: 2013Q2

REPORT INFORMATION
  Report Type: Spontaneous
  Country: GB (occurrence: GB)
  Receive Date: 20130611
  Receipt Date: 20130611
  Transmission Date: 20140414
  Serious: Yes (Other)
  Sender: FDA-Public Use
  Company Number: GB-PFIZER INC-2013170683

PATIENT
  Age: 49 Year
  Sex: Female

DRUGS (7)
  1. SULFASALAZINE [Suspect]
     Indication: RHEUMATOID ARTHRITIS
     Dosage: 2 DF, 3X/DAY
     Route: 048
     Dates: start: 20120727
  2. CARBAMAZEPINE [Concomitant]
     Dosage: UNK
  3. PREGABALIN [Concomitant]
     Dosage: UNK
  4. AMITRIPTYLINE [Concomitant]
     Dosage: UNK
  5. FEXOFENADINE [Concomitant]
     Dosage: UNK
  6. PIVAMPICILLIN [Concomitant]
     Dosage: UNK
  7. GABAPENTIN [Concomitant]
     Dosage: UNK

REACTIONS (4)
  - Contusion [Not Recovered/Not Resolved]
  - Pruritus [Not Recovered/Not Resolved]
  - Mouth ulceration [Not Recovered/Not Resolved]
  - Oropharyngeal pain [Unknown]
